FAERS Safety Report 5106068-1 (Version None)
Quarter: 2006Q3

REPORT INFORMATION
  Report Type: 
  Country: None (occurrence: None)
  Receive Date: 20060912
  Receipt Date: 20060830
  Transmission Date: 20061208
  Serious: Yes (Other)
  Sender: FDA-Public Use
  Company Number: 2006106478

PATIENT
  Sex: Male
  Weight: 74.8435 kg

DRUGS (7)
  1. NORPACE [Suspect]
     Indication: VENTRICULAR TACHYCARDIA
     Dosage: 20 MG (10 MG, 2 IN 1 D),
  2. LENOXIN (DIGOXIN) [Concomitant]
  3. COUMADIN [Concomitant]
  4. TRIAMTERENE (TRIAMTERENE) [Concomitant]
  5. CHLOROTHIAZIDE [Concomitant]
  6. OXYCONTIN [Concomitant]
  7. CALCIUM (CALCIUM) [Concomitant]

REACTIONS (2)
  - DIZZINESS [None]
  - VERTIGO [None]
